FAERS Safety Report 8563748-3 (Version None)
Quarter: 2012Q3

REPORT INFORMATION
  Report Type: 
  Country: None (occurrence: None)
  Receive Date: 20120803
  Receipt Date: 20120730
  Transmission Date: 20120928
  Serious: Yes (Hospitalization)
  Sender: FDA-Public Use
  Company Number: GB-009507513-1208GBR000405

PATIENT

DRUGS (1)
  1. SINEMET [Suspect]
     Dosage: UNK
     Route: 048

REACTIONS (1)
  - GALLBLADDER DISORDER [None]
